FAERS Safety Report 16828148 (Version 1)
Quarter: 2019Q3

REPORT INFORMATION
  Report Type: Spontaneous
  Country: US (occurrence: US)
  Receive Date: 20190919
  Receipt Date: 20190919
  Transmission Date: 20191005
  Serious: Yes (Other)
  Sender: FDA-Public Use
  Company Number: US-PFIZER INC-2019279950

PATIENT
  Age: 74 Year
  Sex: Female
  Weight: 53.97 kg

DRUGS (1)
  1. SUTENT [Suspect]
     Active Substance: SUNITINIB MALATE
     Indication: GASTROINTESTINAL STROMAL TUMOUR
     Dosage: 37.5 MG, CYCLIC (ONE PER DAY FOR 4 WEEKS  THEN OFF FOR 2 WEEKS, REPEAT CYCLE)
     Route: 048
     Dates: end: 201906

REACTIONS (2)
  - Full blood count abnormal [Unknown]
  - Metabolic function test abnormal [Unknown]

NARRATIVE: CASE EVENT DATE: 20190805
